FAERS Safety Report 9821958 (Version 1)
Quarter: 2014Q1

REPORT INFORMATION
  Report Type: Spontaneous
  Country: US (occurrence: US)
  Receive Date: 20140116
  Receipt Date: 20140116
  Transmission Date: 20141002
  Serious: Yes (Hospitalization)
  Sender: FDA-Public Use
  Company Number: US-B.I. PHARMACEUTICALS,INC./RIDGEFIELD-2014-BI-01580BP

PATIENT
  Age: 88 Year
  Sex: Female
  Weight: 54 kg

DRUGS (9)
  1. MICARDIS [Suspect]
     Indication: HYPERTENSION
     Dosage: 40 MG
     Route: 048
     Dates: start: 2003, end: 201308
  2. MICARDIS [Suspect]
     Dosage: 80 MG
     Route: 048
     Dates: start: 201308
  3. TRADJENTA [Suspect]
     Indication: DIABETES MELLITUS
     Dosage: 5 MG
     Route: 048
     Dates: start: 2012
  4. ATENOLOL [Concomitant]
     Indication: HYPERTENSION
     Dosage: 50 MG
     Route: 048
  5. TRICOR [Concomitant]
     Indication: BLOOD CHOLESTEROL INCREASED
     Dosage: 145 MG
     Route: 048
  6. SYNTHROID [Concomitant]
     Indication: HYPOTHYROIDISM
     Dosage: 75 MCG
     Route: 048
  7. VALIUM [Concomitant]
     Indication: INSOMNIA
     Dosage: 5 MG
     Route: 048
  8. PROCRIT [Concomitant]
     Indication: ANAEMIA
     Dosage: FORMULATION: SUBCUTANEOUS
     Route: 058
     Dates: start: 2010
  9. LANTUS INSULIN [Concomitant]
     Indication: DIABETES MELLITUS
     Dosage: 36 U
     Route: 058

REACTIONS (2)
  - Gastroenteritis [Recovered/Resolved]
  - Hypertension [Not Recovered/Not Resolved]
